FAERS Safety Report 4365352-X (Version None)
Quarter: 2004Q2

REPORT INFORMATION
  Report Type: 
  Country: None (occurrence: None)
  Receive Date: 20040520
  Receipt Date: 20040513
  Transmission Date: 20050107
  Serious: Yes (Hospitalization)
  Sender: FDA-Public Use
  Company Number: MK200405-0277-1

PATIENT
  Age: 51 Year
  Sex: Female

DRUGS (17)
  1. ANAFRANIL [Suspect]
     Dates: start: 20040323, end: 20040323
  2. TERCIAN [Concomitant]
  3. PROZAC [Suspect]
  4. EFFEXOR [Suspect]
  5. VOLUVEN [Suspect]
  6. MIRTAZAPINE [Suspect]
  7. LEVOPHED [Suspect]
  8. ACETAMINOPHEN [Suspect]
  9. EQUANIL [Suspect]
  10. HYPNOVEL [Suspect]
  11. LOVENOX [Suspect]
  12. LEXOMIL [Suspect]
  13. ALCOHOL [Suspect]
  14. DEROXAT [Suspect]
  15. ZOLOFT [Suspect]
  16. FENTANYL [Suspect]
  17. MEPRONIZINE [Suspect]

REACTIONS (12)
  - ACUTE RESPIRATORY DISTRESS SYNDROME [None]
  - ALCOHOL POISONING [None]
  - ALVEOLITIS [None]
  - BUNDLE BRANCH BLOCK RIGHT [None]
  - COMA [None]
  - HYPOTENSION [None]
  - MULTIPLE DRUG OVERDOSE [None]
  - MYDRIASIS [None]
  - PNEUMOTHORAX [None]
  - PSEUDOMONAS INFECTION [None]
  - SEROTONIN SYNDROME [None]
  - SUPERINFECTION [None]
